FAERS Safety Report 4489172-0 (Version None)
Quarter: 2004Q4

REPORT INFORMATION
  Report Type: 
  Country: None (occurrence: None)
  Receive Date: 20041028
  Receipt Date: 20041013
  Transmission Date: 20050328
  Serious: Yes (Death, Other)
  Sender: FDA-Public Use
  Company Number: 51642

PATIENT
  Age: 21 Year
  Sex: 0

DRUGS (3)
  1. 12 HOUR PSEUDOEPHED, 120MG, PERRIGO COMPANY [Suspect]
  2. ACETYLSALICYLIC ACID [Concomitant]
  3. METHYLPHENIDATE [Concomitant]

REACTIONS (2)
  - COMPLETED SUICIDE [None]
  - INTENTIONAL OVERDOSE [None]
